FAERS Safety Report 4953713-7 (Version None)
Quarter: 2006Q1

REPORT INFORMATION
  Report Type: 
  Country: None (occurrence: None)
  Receive Date: 20060323
  Receipt Date: 20060323
  Transmission Date: 20060701
  Serious: Yes (Death)
  Sender: FDA-Public Use
  Company Number: None

PATIENT
  Age: 34 Year
  Sex: Male

DRUGS (3)
  1. GEMZAR [Suspect]
     Indication: PANCREATIC CARCINOMA METASTATIC
     Dosage: 1280 MG   WEEKLY    IV DRIP
     Route: 041
     Dates: start: 20051114, end: 20060104
  2. TAXOTERE [Suspect]
     Indication: PANCREATIC CARCINOMA METASTATIC
     Dosage: 51 MG  WEEKLY  IV DRIP
     Route: 041
     Dates: start: 20051114, end: 20060104
  3. XELODA [Suspect]
     Dosage: 1500MG/M2/DAY   DAILY   PO
     Route: 048
     Dates: start: 20051111, end: 20060107

REACTIONS (14)
  - ASCITES [None]
  - CACHEXIA [None]
  - HYPERKALAEMIA [None]
  - HYPOGLYCAEMIA [None]
  - MALIGNANT NEOPLASM PROGRESSION [None]
  - MESENTERIC VEIN THROMBOSIS [None]
  - METASTASES TO LIVER [None]
  - METASTASES TO LUNG [None]
  - METASTASES TO PERITONEUM [None]
  - PANCREATIC CARCINOMA METASTATIC [None]
  - SPLEEN DISORDER [None]
  - SPLENIC VEIN THROMBOSIS [None]
  - TACHYCARDIA [None]
  - VARICOSE VEIN [None]
